FAERS Safety Report 8462753-5 (Version None)
Quarter: 2012Q2

REPORT INFORMATION
  Report Type: 
  Country: None (occurrence: None)
  Receive Date: 20120625
  Receipt Date: 20120612
  Transmission Date: 20120825
  Serious: No
  Sender: FDA-Public Use
  Company Number: US-ASTRAZENECA-2009SE07054

PATIENT
  Age: 82 Year
  Sex: Female

DRUGS (3)
  1. CRESTOR [Suspect]
     Route: 048
     Dates: start: 20100101
  2. VIMOVO [Suspect]
     Dosage: 500 MG NAPROXEN + 20 MG ESOMEPRAZOLE MAGNESIUM
     Route: 048
  3. CRESTOR [Suspect]
     Route: 048

REACTIONS (8)
  - DRUG INTOLERANCE [None]
  - MUSCLE SPASMS [None]
  - MUSCLE DISORDER [None]
  - OFF LABEL USE [None]
  - DRUG HYPERSENSITIVITY [None]
  - MOBILITY DECREASED [None]
  - ARTHRITIS [None]
  - LIMB DISCOMFORT [None]
